FAERS Safety Report 9114797 (Version 1)
Quarter: 2013Q1

REPORT INFORMATION
  Report Type: Spontaneous
  Country: US (occurrence: None)
  Receive Date: 20130220
  Receipt Date: 20130220
  Transmission Date: 20140127
  Serious: Yes (Hospitalization)
  Sender: FDA-Public Use
  Company Number: None

PATIENT
  Age: 39 Year
  Sex: Female
  Weight: 53.52 kg

DRUGS (2)
  1. LEVETIRACETAM [Suspect]
     Indication: EPILEPSY
     Dosage: KEPPRA  300  QHS  PO?2/05/2006  TO  2/15/2006
     Route: 048
     Dates: start: 20060205, end: 20060215
  2. KEPPRA [Suspect]
     Dosage: 300 QHS PO
     Route: 048

REACTIONS (1)
  - Convulsion [None]
